FAERS Safety Report 10586067 (Version 2)
Quarter: 2015Q3

REPORT INFORMATION
  Report Type: Report from Study
  Country: US (occurrence: US)
  Receive Date: 20141115
  Receipt Date: 20150804
  Transmission Date: 20151125
  Serious: Yes (Other)
  Sender: FDA-Public Use
  Company Number: US-SA-2014SA154819

PATIENT
  Age: 55 Year
  Sex: Female
  Weight: 108.86 kg

DRUGS (12)
  1. LEVEMIR [Concomitant]
     Active Substance: INSULIN DETEMIR
  2. NORVASC [Concomitant]
     Active Substance: AMLODIPINE BESYLATE
  3. RITALIN [Concomitant]
     Active Substance: METHYLPHENIDATE HYDROCHLORIDE
  4. BACLOFEN. [Concomitant]
     Active Substance: BACLOFEN
  5. LUNESTA [Concomitant]
     Active Substance: ESZOPICLONE
  6. GABAPENTIN. [Concomitant]
     Active Substance: GABAPENTIN
  7. ESTRADIOL. [Concomitant]
     Active Substance: ESTRADIOL
  8. VESICARE [Concomitant]
     Active Substance: SOLIFENACIN SUCCINATE
  9. CRESTOR [Concomitant]
     Active Substance: ROSUVASTATIN CALCIUM
  10. AUBAGIO [Suspect]
     Active Substance: TERIFLUNOMIDE
     Indication: MULTIPLE SCLEROSIS
     Route: 048
     Dates: start: 20140601
  11. JANUVIA [Concomitant]
     Active Substance: SITAGLIPTIN PHOSPHATE
  12. NOVOLOG [Concomitant]
     Active Substance: INSULIN ASPART

REACTIONS (7)
  - Lacrimation increased [Unknown]
  - Fall [Unknown]
  - Musculoskeletal discomfort [Unknown]
  - Arthropathy [Unknown]
  - Dry throat [Unknown]
  - Gait disturbance [Unknown]
  - Fatigue [Unknown]
